FAERS Safety Report 9610574 (Version 1)
Quarter: 2013Q4

REPORT INFORMATION
  Report Type: Spontaneous
  Country: US (occurrence: US)
  Receive Date: 20131009
  Receipt Date: 20131009
  Transmission Date: 20140711
  Serious: No
  Sender: FDA-Public Use
  Company Number: US-TEVA-436816USA

PATIENT
  Age: 73 Year
  Sex: Male

DRUGS (1)
  1. PROAIR HFA [Suspect]
     Indication: RESPIRATORY TRACT INFECTION
     Dates: start: 20131003, end: 20131003

REACTIONS (3)
  - Flushing [Recovered/Resolved]
  - Nausea [Recovered/Resolved]
  - Blood pressure increased [Recovered/Resolved]
